FAERS Safety Report 10493163 (Version 1)
Quarter: 2014Q4

REPORT INFORMATION
  Report Type: Spontaneous
  Country: US (occurrence: US)
  Receive Date: 20141002
  Receipt Date: 20141002
  Transmission Date: 20150528
  Serious: No
  Sender: FDA-Public Use
  Company Number: US-GLAXOSMITHKLINE-A1080195A

PATIENT
  Age: 55 Year
  Sex: Female

DRUGS (2)
  1. ADVAIR HFA [Suspect]
     Active Substance: FLUTICASONE PROPIONATE\SALMETEROL XINAFOATE
     Indication: ASTHMA
     Dosage: 1PUFF PER DAY
     Route: 055
     Dates: start: 201306
  2. FLUTICASONE PROPIONATE NASAL SPRAY [Concomitant]
     Active Substance: FLUTICASONE PROPIONATE

REACTIONS (9)
  - Productive cough [Unknown]
  - Drug administration error [Unknown]
  - Dysphonia [Unknown]
  - Throat irritation [Unknown]
  - Wheezing [Not Recovered/Not Resolved]
  - Asthma [Unknown]
  - Drug ineffective [Unknown]
  - Aphonia [Unknown]
  - Product quality issue [Unknown]

NARRATIVE: CASE EVENT DATE: 201306
